FAERS Safety Report 24900785 (Version 2)
Quarter: 2025Q1

REPORT INFORMATION
  Report Type: Spontaneous
  Country: IT (occurrence: IT)
  Receive Date: 20250129
  Receipt Date: 20250131
  Transmission Date: 20250409
  Serious: Yes (Hospitalization, Other)
  Sender: PFIZER
  Company Number: IT-MLMSERVICE-20250116-PI361505-00218-1

PATIENT
  Age: 5 Decade
  Sex: Female

DRUGS (3)
  1. METHOTREXATE SODIUM [Suspect]
     Active Substance: METHOTREXATE SODIUM
     Indication: Generalised pustular psoriasis
  2. CYCLOSPORINE [Suspect]
     Active Substance: CYCLOSPORINE
     Indication: Generalised pustular psoriasis
  3. CYCLOSPORINE [Suspect]
     Active Substance: CYCLOSPORINE

REACTIONS (1)
  - Squamous cell carcinoma of skin [Recovering/Resolving]
